FAERS Safety Report 15598497 (Version 2)
Quarter: 2019Q4

REPORT INFORMATION
  Report Type: Spontaneous
  Country: US (occurrence: US)
  Receive Date: 20181108
  Receipt Date: 20191112
  Transmission Date: 20200122
  Serious: No
  Sender: FDA-Public Use
  Company Number: US-ASTRAZENECA-2018SF07019

PATIENT
  Age: 25776 Day
  Sex: Female
  Weight: 46.3 kg

DRUGS (5)
  1. CEFTRIAXONE. [Concomitant]
     Active Substance: CEFTRIAXONE
     Indication: URINARY TRACT INFECTION
     Dates: start: 20190312, end: 20190312
  2. TAGRISSO [Suspect]
     Active Substance: OSIMERTINIB
     Indication: NON-SMALL CELL LUNG CANCER
     Route: 048
     Dates: start: 20180215
  3. CLONAZEPAM. [Concomitant]
     Active Substance: CLONAZEPAM
  4. CHEMO [Concomitant]
     Active Substance: UNSPECIFIED INGREDIENT
     Indication: LUNG NEOPLASM MALIGNANT
  5. LISINOPRIL. [Concomitant]
     Active Substance: LISINOPRIL
     Dosage: 10.0MG UNKNOWN

REACTIONS (9)
  - Cornea verticillata [Unknown]
  - Sinus congestion [Unknown]
  - Arrhythmia [Unknown]
  - Diarrhoea [Not Recovered/Not Resolved]
  - Photophobia [Unknown]
  - Hypersensitivity [Unknown]
  - Corneal deposits [Unknown]
  - Supraventricular tachycardia [Unknown]
  - Fatigue [Unknown]

NARRATIVE: CASE EVENT DATE: 20180215
